FAERS Safety Report 6856669-5 (Version None)
Quarter: 2010Q3

REPORT INFORMATION
  Report Type: 
  Country: None (occurrence: None)
  Receive Date: 20100719
  Receipt Date: 20100713
  Transmission Date: 20110219
  Serious: Yes (Life-Threatening)
  Sender: FDA-Public Use
  Company Number: PL-ASTRAZENECA-2010SE32711

PATIENT
  Age: 31 Year
  Sex: Female

DRUGS (3)
  1. OMEPRAZOLE [Suspect]
     Indication: PHARYNGITIS
     Dates: start: 20090201
  2. SULPHASALAZINE [Suspect]
     Indication: PSORIASIS
     Dates: start: 20090201
  3. CLARITHROMYCIN [Suspect]
     Indication: PHARYNGITIS
     Dates: start: 20090201

REACTIONS (2)
  - SEPSIS [None]
  - TOXIC EPIDERMAL NECROLYSIS [None]
